FAERS Safety Report 18918060 (Version 1)
Quarter: 2021Q1

REPORT INFORMATION
  Report Type: Spontaneous
  Country: US (occurrence: US)
  Receive Date: 20210219
  Receipt Date: 20210219
  Transmission Date: 20210420
  Serious: No
  Sender: FDA-Public Use
  Company Number: US-PERRIGO-20US017809

PATIENT
  Age: 67 Year
  Sex: Female

DRUGS (1)
  1. KETOCONAZOLE. [Suspect]
     Active Substance: KETOCONAZOLE
     Indication: FUNGAL INFECTION
     Dosage: SMALL AMOUNT, SINGLE
     Route: 061
     Dates: start: 20201207, end: 20201207

REACTIONS (1)
  - Alopecia [Recovered/Resolved]

NARRATIVE: CASE EVENT DATE: 20201207
